FAERS Safety Report 6883561-2 (Version None)
Quarter: 2010Q3

REPORT INFORMATION
  Report Type: 
  Country: None (occurrence: None)
  Receive Date: 20100729
  Receipt Date: 20100722
  Transmission Date: 20110219
  Serious: Yes (Other)
  Sender: FDA-Public Use
  Company Number: CA-BAYER-201028471NA

PATIENT
  Age: 58 Year
  Sex: Female
  Weight: 75 kg

DRUGS (3)
  1. MAGNEVIST [Suspect]
     Indication: IMAGING PROCEDURE
     Dosage: TOTAL DAILY DOSE: 20 ML
     Dates: start: 20100719, end: 20100719
  2. MAGNEVIST [Suspect]
  3. CALORIE BURNING PILLS [Concomitant]

REACTIONS (3)
  - HAEMATEMESIS [None]
  - MALAISE [None]
  - VOMITING [None]
